FAERS Safety Report 4792366-8 (Version None)
Quarter: 2005Q4

REPORT INFORMATION
  Report Type: 
  Country: None (occurrence: None)
  Receive Date: 20051010
  Receipt Date: 20050927
  Transmission Date: 20060501
  Serious: Yes (Other)
  Sender: FDA-Public Use
  Company Number: US-JNJFOC-20050904330

PATIENT
  Sex: Male

DRUGS (18)
  1. BLINDED; INFLIXIMAB, RECOMBINANT [Suspect]
     Indication: CROHN'S DISEASE
     Route: 042
  2. PLACEBO [Suspect]
     Indication: CROHN'S DISEASE
     Route: 042
  3. IMURAN [Concomitant]
     Indication: CROHN'S DISEASE
     Route: 048
  4. PREVICID [Concomitant]
     Indication: CROHN'S DISEASE
     Route: 048
  5. PROVENTIL [Concomitant]
     Indication: ASTHMA
     Dosage: 2 PUFS
     Route: 055
  6. AEROBID [Concomitant]
     Dosage: 2 PUFFS
     Route: 055
  7. TILADE [Concomitant]
     Indication: ASTHMA
     Dosage: 2 PUFFS
     Route: 055
  8. ZYPREXA [Concomitant]
     Indication: INSOMNIA
     Route: 048
  9. RESTORIL [Concomitant]
     Indication: INSOMNIA
     Route: 048
  10. ALPRAZOLAM [Concomitant]
     Indication: ANXIETY
     Dosage: 0.25 MG TO 0.50 MG
     Route: 048
  11. MULTI-VITAMIN [Concomitant]
     Route: 048
  12. MULTI-VITAMIN [Concomitant]
     Route: 048
  13. MULTI-VITAMIN [Concomitant]
     Route: 048
  14. MULTI-VITAMIN [Concomitant]
     Route: 048
  15. MULTI-VITAMIN [Concomitant]
     Route: 048
  16. MULTI-VITAMIN [Concomitant]
     Route: 048
  17. MULTI-VITAMIN [Concomitant]
     Route: 048
  18. MULTI-VITAMIN [Concomitant]
     Route: 048

REACTIONS (1)
  - LUNG NEOPLASM [None]
